FAERS Safety Report 11923410 (Version 4)
Quarter: 2016Q1

REPORT INFORMATION
  Report Type: Report from Study
  Country: US (occurrence: US)
  Receive Date: 20160118
  Receipt Date: 20160224
  Transmission Date: 20160526
  Serious: Yes (Other)
  Sender: FDA-Public Use
  Company Number: US-AMGEN-USASL2016001236

PATIENT
  Age: 74 Year
  Sex: Female

DRUGS (3)
  1. KEFLEX [Concomitant]
     Active Substance: CEPHALEXIN
     Dosage: UNK
  2. ENBREL [Suspect]
     Active Substance: ETANERCEPT
     Indication: RHEUMATOID ARTHRITIS
     Dosage: 50 MG, QWK
     Route: 065
     Dates: start: 2013
  3. ENBREL [Suspect]
     Active Substance: ETANERCEPT
     Indication: ARTHRITIS

REACTIONS (7)
  - Device issue [Unknown]
  - Drug dose omission [Unknown]
  - Foot deformity [Unknown]
  - Hyperkeratosis [Unknown]
  - Scab [Unknown]
  - Joint arthroplasty [Unknown]
  - Cellulitis [Unknown]

NARRATIVE: CASE EVENT DATE: 201508
